FAERS Safety Report 5200030-6 (Version None)
Quarter: 2007Q1

REPORT INFORMATION
  Report Type: 
  Country: None (occurrence: None)
  Receive Date: 20070103
  Receipt Date: 20061220
  Transmission Date: 20070707
  Serious: Yes (Other)
  Sender: FDA-Public Use
  Company Number: 30666

PATIENT
  Age: 60 Year
  Sex: Male

DRUGS (1)
  1. ALDARA [Suspect]
     Indication: ACTINIC KERATOSIS
     Dosage: (UNK, 5 IN 1 WEEK(S)), TOPICAL
     Route: 061
     Dates: start: 20060801, end: 20061101

REACTIONS (1)
  - PEMPHIGOID [None]
